FAERS Safety Report 17693055 (Version 2)
Quarter: 2020Q2

REPORT INFORMATION
  Report Type: Spontaneous
  Country: US (occurrence: US)
  Receive Date: 20200422
  Receipt Date: 20200521
  Transmission Date: 20200714
  Serious: No
  Sender: FDA-Public Use
  Company Number: US-PFIZER INC-2020157955

PATIENT
  Age: 54 Year
  Sex: Male

DRUGS (1)
  1. XELJANZ [Suspect]
     Active Substance: TOFACITINIB CITRATE
     Indication: COLITIS ULCERATIVE
     Dosage: 10 MG, 2X/DAY
     Route: 048
     Dates: start: 20200307

REACTIONS (3)
  - Condition aggravated [Unknown]
  - Immune system disorder [Unknown]
  - Product dose omission [Unknown]

NARRATIVE: CASE EVENT DATE: 2020
